FAERS Safety Report 6295923-5 (Version None)
Quarter: 2009Q3

REPORT INFORMATION
  Report Type: 
  Country: None (occurrence: None)
  Receive Date: 20090804
  Receipt Date: 20090723
  Transmission Date: 20100115
  Serious: Yes (Other)
  Sender: FDA-Public Use
  Company Number: GB-JNJFOC-20090707486

PATIENT
  Sex: Female
  Weight: 72 kg

DRUGS (10)
  1. REMICADE [Suspect]
     Route: 042
  2. REMICADE [Suspect]
     Indication: RHEUMATOID ARTHRITIS
     Route: 042
  3. PREDNISOLONE [Concomitant]
  4. CALCICHEW [Concomitant]
  5. CO-DYDRAMOL [Concomitant]
  6. FELODIPINE [Concomitant]
  7. MELOXICAM [Concomitant]
  8. RAMIPRIL [Concomitant]
  9. ZOTON [Concomitant]
  10. METHOTREXATE [Concomitant]

REACTIONS (1)
  - SKIN CANCER [None]
